FAERS Safety Report 25631398 (Version 1)
Quarter: 2025Q3

REPORT INFORMATION
  Report Type: Report from Study
  Country: CA (occurrence: CA)
  Receive Date: 20250801
  Receipt Date: 20250801
  Transmission Date: 20251020
  Serious: Yes (Other)
  Sender: CSL BEHRING
  Company Number: CA-BEH-2025193106

PATIENT
  Age: 79 Year
  Sex: Female
  Weight: 49.887 kg

DRUGS (12)
  1. HIZENTRA [Suspect]
     Active Substance: HUMAN IMMUNOGLOBULIN G
     Indication: Secondary immunodeficiency
     Dosage: 7 G, QW(DIVIDED OVER 2 DAYS)
     Route: 065
     Dates: start: 20230830
  2. HIZENTRA [Suspect]
     Active Substance: HUMAN IMMUNOGLOBULIN G
     Dosage: 7 G, QW(DIVIDED OVER 2 DAYS)
     Route: 065
     Dates: start: 20230830
  3. HIZENTRA [Suspect]
     Active Substance: HUMAN IMMUNOGLOBULIN G
     Dosage: 7 G, QW(DIVIDED OVER 2 DAYS)
     Route: 065
     Dates: start: 20230830
  4. HIZENTRA [Suspect]
     Active Substance: HUMAN IMMUNOGLOBULIN G
     Dosage: UNK UNK, QW
     Route: 065
     Dates: start: 20230830
  5. HIZENTRA [Suspect]
     Active Substance: HUMAN IMMUNOGLOBULIN G
     Dosage: 7 G, QW
     Route: 065
     Dates: start: 20230830
  6. HIZENTRA [Suspect]
     Active Substance: HUMAN IMMUNOGLOBULIN G
     Route: 065
     Dates: start: 20250307
  7. HIZENTRA [Suspect]
     Active Substance: HUMAN IMMUNOGLOBULIN G
     Dosage: 7 G, QW (DIVIDED OVER 2 DAYS), (PRODUCT STRENGTH 1-1G, 1-2G, 1-4G)
     Route: 065
     Dates: start: 20230830
  8. PREDNISONE [Concomitant]
     Active Substance: PREDNISONE
  9. PANTOPRAZOLE [Concomitant]
     Active Substance: PANTOPRAZOLE
  10. ATENOLOL [Concomitant]
     Active Substance: ATENOLOL
  11. VITAMIN D NOS [Concomitant]
     Active Substance: CHOLECALCIFEROL\ERGOCALCIFEROL
  12. ZOPICLONE [Concomitant]
     Active Substance: ZOPICLONE

REACTIONS (27)
  - Pneumonia [Unknown]
  - Cataract [Unknown]
  - Blood immunoglobulin G decreased [Unknown]
  - Cough [Unknown]
  - Malaise [Unknown]
  - Therapy interrupted [Unknown]
  - Cough [Unknown]
  - Nausea [Unknown]
  - Dyspepsia [Unknown]
  - Nausea [Not Recovered/Not Resolved]
  - Upper-airway cough syndrome [Unknown]
  - Abdominal pain upper [Unknown]
  - Vomiting [Unknown]
  - Nausea [Unknown]
  - Therapy interrupted [Unknown]
  - Gastrooesophageal reflux disease [Unknown]
  - Abdominal pain upper [Recovered/Resolved]
  - Diarrhoea [Recovered/Resolved]
  - Diarrhoea [Recovered/Resolved]
  - Abdominal discomfort [Recovered/Resolved]
  - Administration site rash [Recovered/Resolved]
  - Rash pruritic [Recovered/Resolved]
  - Fatigue [Unknown]
  - Therapy interrupted [Unknown]
  - Abdominal pain upper [Recovered/Resolved]
  - Diarrhoea [Recovered/Resolved]
  - Injection site bruising [Recovering/Resolving]

NARRATIVE: CASE EVENT DATE: 20250101
